FAERS Safety Report 9368812 (Version 1)
Quarter: 2013Q2

REPORT INFORMATION
  Report Type: Spontaneous
  Country: US (occurrence: US)
  Receive Date: 20130626
  Receipt Date: 20130626
  Transmission Date: 20140414
  Serious: Yes (Hospitalization)
  Sender: FDA-Public Use
  Company Number: US-B.I. PHARMACEUTICALS,INC./RIDGEFIELD-2013-BI-17802BP

PATIENT
  Age: 81 Year
  Sex: Male

DRUGS (12)
  1. PRADAXA [Suspect]
     Indication: ATRIAL FIBRILLATION
     Dosage: 300 MG
     Route: 048
     Dates: start: 201301
  2. LANOXIN [Concomitant]
     Route: 048
  3. LASIX [Concomitant]
     Dosage: 20 MG
     Route: 048
  4. SIMVASTATIN [Concomitant]
     Indication: BLOOD CHOLESTEROL INCREASED
     Dosage: 80 MG
     Route: 048
  5. METFORMIN [Concomitant]
     Indication: DIABETES MELLITUS
     Dosage: 2000 MG
     Route: 048
  6. DESYREL [Concomitant]
     Route: 048
  7. POTASSIUM [Concomitant]
     Route: 048
  8. CARDIZEM [Concomitant]
     Dosage: 180 MG
     Route: 048
  9. ASPIRIN [Concomitant]
     Dosage: 81 MG
     Route: 048
  10. LOSARTAN [Concomitant]
     Route: 048
  11. BACTRIM [Concomitant]
     Route: 048
  12. MEGA MEMORY [Concomitant]
     Indication: DEMENTIA
     Route: 048

REACTIONS (2)
  - Pulmonary oedema [Recovered/Resolved]
  - Cardiac failure congestive [Recovered/Resolved]
